FAERS Safety Report 5263372-4 (Version None)
Quarter: 2007Q1

REPORT INFORMATION
  Report Type: 
  Country: None (occurrence: None)
  Receive Date: 20070313
  Receipt Date: 20070228
  Transmission Date: 20070707
  Serious: Yes (Other)
  Sender: FDA-Public Use
  Company Number: ID-ELI_LILLY_AND_COMPANY-ID200703000326

PATIENT
  Age: 45 Year
  Sex: Female

DRUGS (2)
  1. ZYPREXA [Suspect]
     Indication: AGITATION
     Dosage: 10 MG, UNK
     Route: 030
     Dates: start: 20070226, end: 20070226
  2. STELAZINE [Concomitant]
     Dosage: 5 MG, DAILY (1/D)

REACTIONS (2)
  - HYPOVENTILATION [None]
  - LOSS OF CONSCIOUSNESS [None]
